FAERS Safety Report 4917463-5 (Version None)
Quarter: 2006Q1

REPORT INFORMATION
  Report Type: 
  Country: None (occurrence: None)
  Receive Date: 20060221
  Receipt Date: 20050921
  Transmission Date: 20060701
  Serious: Yes (Hospitalization, Disabling, Other)
  Sender: FDA-Public Use
  Company Number: US-MERCK-0509USA03418

PATIENT
  Age: 51 Year
  Sex: Female
  Weight: 68 kg

DRUGS (9)
  1. VIOXX [Suspect]
     Indication: OSTEOARTHRITIS
     Route: 048
     Dates: start: 20010101, end: 20040209
  2. VIOXX [Suspect]
     Route: 048
     Dates: start: 20000101, end: 20000101
  3. ESTRADIOL [Concomitant]
     Indication: HORMONE REPLACEMENT THERAPY
     Route: 048
     Dates: start: 19850101, end: 20050101
  4. DARVOCET-N 50 [Concomitant]
     Route: 048
  5. NASONEX [Concomitant]
     Indication: SEASONAL ALLERGY
     Route: 055
  6. CLARITIN [Concomitant]
     Indication: SEASONAL ALLERGY
     Route: 048
  7. ACIPHEX [Concomitant]
     Route: 048
  8. CELEBREX [Suspect]
     Route: 048
     Dates: start: 20030102
  9. BEXTRA [Suspect]
     Route: 048
     Dates: start: 20021227

REACTIONS (24)
  - ABDOMINAL PAIN [None]
  - ABDOMINAL PAIN UPPER [None]
  - AORTIC VALVE INCOMPETENCE [None]
  - BLOOD PRESSURE INADEQUATELY CONTROLLED [None]
  - CARDIAC MURMUR [None]
  - CEREBELLAR INFARCTION [None]
  - CEREBRAL ISCHAEMIA [None]
  - CHEST PAIN [None]
  - CHOLECYSTITIS [None]
  - DILATATION VENTRICULAR [None]
  - DIZZINESS [None]
  - DYSPEPSIA [None]
  - EYE DISORDER [None]
  - GASTROOESOPHAGEAL REFLUX DISEASE [None]
  - HEART RATE IRREGULAR [None]
  - HIATUS HERNIA [None]
  - HYPERTENSION [None]
  - INSOMNIA [None]
  - MUSCLE SPASMS [None]
  - PALPITATIONS [None]
  - PANCREATITIS [None]
  - REFLUX GASTRITIS [None]
  - SUPRAVENTRICULAR TACHYCARDIA [None]
  - VENTRICULAR EXTRASYSTOLES [None]
